FAERS Safety Report 10444707 (Version 1)
Quarter: 2014Q3

REPORT INFORMATION
  Report Type: Spontaneous
  Country: US (occurrence: US)
  Receive Date: 20140910
  Receipt Date: 20140910
  Transmission Date: 20150326
  Serious: No
  Sender: FDA-Public Use
  Company Number: US-PFIZER INC-2014247763

PATIENT
  Age: 33 Year
  Sex: Female

DRUGS (1)
  1. CHAPSTICK HYDRATION LOCK DAY AND NIGHT [Suspect]
     Active Substance: OCTINOXATE\OXYBENZONE\PETROLATUM
     Dosage: UNK

REACTIONS (1)
  - Drug tolerance [Unknown]
